FAERS Safety Report 15640812 (Version 1)
Quarter: 2018Q4

REPORT INFORMATION
  Report Type: Report from Study
  Country: HU (occurrence: HU)
  Receive Date: 20181120
  Receipt Date: 20181120
  Transmission Date: 20190205
  Serious: Yes (Other)
  Sender: FDA-Public Use
  Company Number: HU-PFIZER INC-2018470930

PATIENT
  Age: 81 Year
  Sex: Male
  Weight: 80 kg

DRUGS (10)
  1. BISOBLOCK [Concomitant]
     Active Substance: BISOPROLOL FUMARATE
     Dosage: 0.5 DF, 2X/DAY
     Route: 065
  2. MEKINIST [Suspect]
     Active Substance: TRAMETINIB DIMETHYL SULFOXIDE
     Route: 065
  3. SYNCUMAR [Concomitant]
     Active Substance: ACENOCOUMAROL
     Dosage: 2 MG, ALTERNATE DAY
  4. ATORVASTATIN CALCIUM. [Suspect]
     Active Substance: ATORVASTATIN CALCIUM
     Dosage: 1 DF, 1X/DAY (EVENING)
     Route: 065
  5. TAFINLAR [Suspect]
     Active Substance: DABRAFENIB MESYLATE
     Dosage: 300 MG, 2X/DAY
     Route: 048
     Dates: start: 20180706
  6. TRITACE [Concomitant]
     Active Substance: RAMIPRIL
     Dosage: 0.5 DF, 2X/DAY
     Route: 065
  7. SYNCUMAR [Concomitant]
     Active Substance: ACENOCOUMAROL
     Dosage: 1 MG, ALTERNATE DAY
     Route: 065
  8. TAFINLAR [Suspect]
     Active Substance: DABRAFENIB MESYLATE
     Indication: METASTATIC MALIGNANT MELANOMA
     Dosage: 2 DF, 1X/DAY
     Route: 048
  9. TAFINLAR [Suspect]
     Active Substance: DABRAFENIB MESYLATE
     Dosage: 2 DF, 2X/DAY
     Route: 048
  10. BRINALDIX [Concomitant]
     Dosage: 0.5 DF, 1X/DAY (EVENING)
     Route: 065

REACTIONS (5)
  - Squamous cell carcinoma [Not Recovered/Not Resolved]
  - Peripheral swelling [Recovering/Resolving]
  - Left ventricular dysfunction [Recovering/Resolving]
  - Hyperkeratosis [Not Recovered/Not Resolved]
  - Scar [Unknown]

NARRATIVE: CASE EVENT DATE: 20180720
